FAERS Safety Report 8214658-2 (Version None)
Quarter: 2012Q1

REPORT INFORMATION
  Report Type: 
  Country: None (occurrence: None)
  Receive Date: 20120229
  Receipt Date: 20110817
  Transmission Date: 20120608
  Serious: Yes (Hospitalization)
  Sender: FDA-Public Use
  Company Number: US-JNJFOC-20110806715

PATIENT
  Sex: Female
  Weight: 108.8633 kg

DRUGS (1)
  1. MOTRIN [Suspect]
     Indication: ARTHRALGIA
     Dosage: ORAL
     Route: 048

REACTIONS (1)
  - ULCER HAEMORRHAGE [None]
